FAERS Safety Report 22636671 (Version 1)
Quarter: 2023Q2

REPORT INFORMATION
  Report Type: Spontaneous
  Country: US (occurrence: US)
  Receive Date: 20230623
  Receipt Date: 20230623
  Transmission Date: 20230721
  Serious: Yes (Other)
  Sender: FDA-Public Use
  Company Number: US-TEVA-2023-US-2899020

PATIENT
  Age: 55 Year
  Sex: Female
  Weight: 86.2 kg

DRUGS (6)
  1. NYSTATIN [Suspect]
     Active Substance: NYSTATIN
     Indication: Candida infection
     Route: 065
  2. TYVASO [Suspect]
     Active Substance: TREPROSTINIL
     Indication: Pulmonary arterial hypertension
     Dosage: 216 MICROGRAM DAILY; STRENGTH: 0.6 MG/ML
     Route: 055
  3. TYVASO [Suspect]
     Active Substance: TREPROSTINIL
     Route: 055
  4. TYVASO [Suspect]
     Active Substance: TREPROSTINIL
     Route: 055
     Dates: start: 20220208
  5. LETAIRIS [Concomitant]
     Active Substance: AMBRISENTAN
     Indication: Product used for unknown indication
  6. REVATIO [Concomitant]
     Active Substance: SILDENAFIL CITRATE
     Indication: Product used for unknown indication

REACTIONS (15)
  - Systemic lupus erythematosus [Unknown]
  - Infection [Unknown]
  - Fatigue [Unknown]
  - Drug hypersensitivity [Unknown]
  - Headache [Unknown]
  - Dyspepsia [Unknown]
  - Gastrooesophageal reflux disease [Unknown]
  - Stress [Unknown]
  - Pain [Unknown]
  - Bite [Unknown]
  - Depressed mood [Unknown]
  - Burning sensation [Unknown]
  - Weight decreased [Unknown]
  - Candida infection [Unknown]
  - Oral infection [Unknown]

NARRATIVE: CASE EVENT DATE: 20230504
